FAERS Safety Report 7956376-1 (Version None)
Quarter: 2011Q4

REPORT INFORMATION
  Report Type: 
  Country: None (occurrence: None)
  Receive Date: 20111205
  Receipt Date: 20111130
  Transmission Date: 20120403
  Serious: Yes (Other)
  Sender: FDA-Public Use
  Company Number: US-PFIZER INC-2011228441

PATIENT
  Sex: Female
  Weight: 79.365 kg

DRUGS (3)
  1. VENLAFAXINE HCL [Suspect]
     Indication: ANXIETY
     Dosage: 150 MG, 1X/DAY
     Route: 048
     Dates: start: 20110907, end: 20110910
  2. VENLAFAXINE HCL [Suspect]
     Indication: DEPRESSION
     Dosage: 150 MG DAILY
     Route: 048
     Dates: start: 20090101, end: 20090101
  3. AMBIEN [Concomitant]
     Indication: SLEEP DISORDER
     Dosage: 10 MG, DAILY

REACTIONS (7)
  - DRUG WITHDRAWAL SYNDROME [None]
  - PRURITUS [None]
  - HYPERSENSITIVITY [None]
  - SWELLING FACE [None]
  - OEDEMA MOUTH [None]
  - SWOLLEN TONGUE [None]
  - DYSPNOEA [None]
